FAERS Safety Report 11812565 (Version 1)
Quarter: 2015Q4

REPORT INFORMATION
  Report Type: Spontaneous
  Country: FR (occurrence: FR)
  Receive Date: 20151208
  Receipt Date: 20151208
  Transmission Date: 20160305
  Serious: Yes (Hospitalization, Other)
  Sender: FDA-Public Use
  Company Number: FR-BRISTOL-MYERS SQUIBB COMPANY-BMS-2015-082830

PATIENT
  Age: 87 Year
  Sex: Male

DRUGS (5)
  1. LOVENOX [Suspect]
     Active Substance: ENOXAPARIN SODIUM
     Indication: DEEP VEIN THROMBOSIS
     Dosage: 2 DF, BID
     Route: 058
     Dates: start: 20150930, end: 20151004
  2. COUMADINE [Suspect]
     Active Substance: WARFARIN SODIUM
     Indication: DEEP VEIN THROMBOSIS
     Dosage: 1 UNK, UNK
     Route: 065
     Dates: end: 20150929
  3. ATORVASTATIN [Concomitant]
     Active Substance: ATORVASTATIN
     Indication: PRODUCT USED FOR UNKNOWN INDICATION
     Dosage: 40 MG, UNK
     Route: 065
  4. AMLODIPINE [Concomitant]
     Active Substance: AMLODIPINE BESYLATE
     Indication: PRODUCT USED FOR UNKNOWN INDICATION
     Dosage: 5 MG, UNK
     Route: 065
  5. NEBIVOLOL. [Concomitant]
     Active Substance: NEBIVOLOL
     Indication: PRODUCT USED FOR UNKNOWN INDICATION
     Dosage: 1 UNK, UNK
     Route: 065

REACTIONS (9)
  - Abscess drainage [Unknown]
  - Sepsis [Unknown]
  - Cholecystitis acute [Unknown]
  - Haematuria [Not Recovered/Not Resolved]
  - General physical health deterioration [Unknown]
  - Liver abscess [Unknown]
  - International normalised ratio increased [Recovered/Resolved]
  - Malnutrition [Unknown]
  - Overdose [Unknown]

NARRATIVE: CASE EVENT DATE: 20150927
